FAERS Safety Report 15132909 (Version 3)
Quarter: 2018Q3

REPORT INFORMATION
  Report Type: Report from Study
  Country: US (occurrence: US)
  Receive Date: 20180712
  Receipt Date: 20180725
  Transmission Date: 20181010
  Serious: No
  Sender: FDA-Public Use
  Company Number: US-AMGEN-USASL2018093127

PATIENT
  Age: 75 Year
  Sex: Female

DRUGS (1)
  1. ENBREL [Suspect]
     Active Substance: ETANERCEPT
     Indication: PSORIATIC ARTHROPATHY
     Dosage: 50 MG, QWK
     Route: 058
     Dates: start: 20180606, end: 201807

REACTIONS (11)
  - Injection site bruising [Unknown]
  - Fatigue [Recovering/Resolving]
  - Pain [Unknown]
  - Injection site induration [Unknown]
  - Dyspepsia [Unknown]
  - Injection site erythema [Unknown]
  - Diarrhoea [Recovering/Resolving]
  - Nausea [Recovering/Resolving]
  - Headache [Recovering/Resolving]
  - Hyperhidrosis [Recovering/Resolving]
  - Wound [Unknown]

NARRATIVE: CASE EVENT DATE: 2018
